FAERS Safety Report 4778204-8 (Version None)
Quarter: 2005Q3

REPORT INFORMATION
  Report Type: 
  Country: None (occurrence: None)
  Receive Date: 20050926
  Receipt Date: 20020418
  Transmission Date: 20060218
  Serious: Yes (Other)
  Sender: FDA-Public Use
  Company Number: US-BRISTOL-MYERS SQUIBB COMPANY-11832565

PATIENT
  Age: 32 Year
  Sex: Female

DRUGS (6)
  1. STADOL [Suspect]
     Dates: start: 19900101, end: 19910101
  2. STADOL [Suspect]
     Route: 045
     Dates: start: 19940302
  3. PROMETHAZINE [Concomitant]
  4. ULTRAM [Concomitant]
  5. CARISOPRODOL [Concomitant]
  6. BUTALBITAL ACETAMINOPHEN AND CAFFEINE [Concomitant]

REACTIONS (1)
  - DEPENDENCE [None]
